FAERS Safety Report 4325234-6 (Version None)
Quarter: 2004Q1

REPORT INFORMATION
  Report Type: 
  Country: None (occurrence: None)
  Receive Date: 20040324
  Receipt Date: 20040309
  Transmission Date: 20041129
  Serious: Yes (Hospitalization)
  Sender: FDA-Public Use
  Company Number: AU-JNJFOC-20040304014

PATIENT
  Age: 38 Year
  Sex: Male

DRUGS (10)
  1. TRAMADOL HCL [Suspect]
     Indication: GENERAL SYMPTOM
     Dosage: 50 MG, IN 1 AS NECESSARY
     Dates: start: 20030706, end: 20030806
  2. CARBAMAZEPINE [Suspect]
     Indication: GENERAL SYMPTOM
     Dosage: 200 MG, IN 1 DAY, ORAL
     Route: 048
     Dates: start: 20030711, end: 20030806
  3. MOXIFLOXACIN (MOXIFLOXACIN) [Suspect]
     Indication: GENERAL SYMPTOM
     Dosage: 400 MG
     Dates: start: 20030725, end: 20030804
  4. OXYCODONE HCL [Concomitant]
  5. DICLOFENAC SODIUM [Concomitant]
  6. OXYCONTIN (OXYCONDONE HYDROCHLORIDE) [Concomitant]
  7. ELOCON [Concomitant]
  8. MAXOLON [Concomitant]
  9. ACETAMINOPHEN [Concomitant]
  10. PROMETHAZINE [Concomitant]

REACTIONS (2)
  - LICHEN PLANUS [None]
  - URTICARIA [None]
